FAERS Safety Report 19569931 (Version 1)
Quarter: 2021Q3

REPORT INFORMATION
  Report Type: Spontaneous
  Country: IE (occurrence: IE)
  Receive Date: 20210715
  Receipt Date: 20210715
  Transmission Date: 20211014
  Serious: Yes (Other)
  Sender: FDA-Public Use
  Company Number: IE-TAKEDA-2021TUS043872

PATIENT
  Age: 57 Year
  Sex: Male

DRUGS (2)
  1. VELCADE [Suspect]
     Active Substance: BORTEZOMIB
     Indication: PLASMA CELL MYELOMA RECURRENT
     Dosage: UNK
     Route: 065
     Dates: start: 201712
  2. THALIDOMIDE [Suspect]
     Active Substance: THALIDOMIDE
     Indication: PLASMA CELL MYELOMA RECURRENT
     Dosage: UNK
     Route: 065
     Dates: start: 201712

REACTIONS (1)
  - Plasma cell myeloma [Unknown]

NARRATIVE: CASE EVENT DATE: 201712
